FAERS Safety Report 9763469 (Version 1)
Quarter: 2013Q4

REPORT INFORMATION
  Report Type: Spontaneous
  Country: US (occurrence: US)
  Receive Date: 20131216
  Receipt Date: 20131216
  Transmission Date: 20140711
  Serious: No
  Sender: FDA-Public Use
  Company Number: US-BIOGENIDEC-2013BI105809

PATIENT
  Age: 27 Year
  Sex: Female

DRUGS (4)
  1. TECFIDERA [Suspect]
     Indication: MULTIPLE SCLEROSIS
     Route: 048
     Dates: start: 201309
  2. GABAPENTIN [Concomitant]
  3. TRAZODONE [Concomitant]
  4. IBUPROFEN [Concomitant]

REACTIONS (4)
  - Constipation [Unknown]
  - Dizziness [Unknown]
  - Flushing [Unknown]
  - Nausea [Unknown]
